FAERS Safety Report 5397654-2 (Version None)
Quarter: 2007Q3

REPORT INFORMATION
  Report Type: 
  Country: None (occurrence: None)
  Receive Date: 20070723
  Receipt Date: 20070723
  Transmission Date: 20080115
  Serious: No
  Sender: FDA-Public Use
  Company Number: None

PATIENT
  Sex: Female

DRUGS (1)
  1. DETROL LA [Suspect]
     Indication: POLLAKIURIA
     Dosage: 4MG  1 EVERY DAY  PO
     Route: 048
     Dates: start: 20030924, end: 20070710

REACTIONS (1)
  - ALOPECIA [None]
